FAERS Safety Report 6923147-4 (Version None)
Quarter: 2010Q3

REPORT INFORMATION
  Report Type: 
  Country: None (occurrence: None)
  Receive Date: 20100813
  Receipt Date: 20100708
  Transmission Date: 20110219
  Serious: Yes (Hospitalization)
  Sender: FDA-Public Use
  Company Number: NO-ROCHE-693535

PATIENT
  Sex: Male

DRUGS (2)
  1. TAMIFLU [Suspect]
     Route: 065
     Dates: start: 20091108
  2. PANDEMRIX [Suspect]
     Dosage: 1 DOSE.
     Route: 051
     Dates: start: 20091103

REACTIONS (2)
  - CONVULSION [None]
  - EPILEPSY [None]
